FAERS Safety Report 20956562 (Version 3)
Quarter: 2022Q3

REPORT INFORMATION
  Report Type: Spontaneous
  Country: None (occurrence: US)
  Receive Date: 20220614
  Receipt Date: 20220816
  Transmission Date: 20221027
  Serious: Yes (Other)
  Sender: FDA-Public Use
  Company Number: US-Edgewell Personal Care, LLC-2129839

PATIENT
  Age: 24 Month
  Sex: Male
  Weight: 14.545 kg

DRUGS (1)
  1. BANANA BOAT (AVOBENZONE\HOMOSALATE\OCTISALATE\OCTOCRYLENE) [Suspect]
     Active Substance: AVOBENZONE\HOMOSALATE\OCTISALATE\OCTOCRYLENE
     Indication: Prophylaxis against solar radiation
     Route: 061
     Dates: start: 20220528, end: 20220528

REACTIONS (9)
  - Erythema [Recovering/Resolving]
  - Blister [Recovering/Resolving]
  - Skin infection [Recovering/Resolving]
  - Scab [Recovering/Resolving]
  - Burns second degree [Recovering/Resolving]
  - Scar [Not Recovered/Not Resolved]
  - Burns third degree [Recovering/Resolving]
  - Burns first degree [Recovering/Resolving]
  - Impetigo [Recovering/Resolving]

NARRATIVE: CASE EVENT DATE: 20220528
